FAERS Safety Report 25453441 (Version 1)
Quarter: 2025Q2

REPORT INFORMATION
  Report Type: Spontaneous
  Country: GB (occurrence: GB)
  Receive Date: 20250619
  Receipt Date: 20250619
  Transmission Date: 20250717
  Serious: Yes (Other)
  Sender: AUROBINDO
  Company Number: GB-MHRA-MED-202506031503499140-SMVDC

PATIENT
  Age: 31 Year
  Sex: Female
  Weight: 57 kg

DRUGS (1)
  1. CIPROFLOXACIN [Suspect]
     Active Substance: CIPROFLOXACIN
     Indication: Respiratory tract infection
     Dosage: 500 MILLIGRAM, TWO TIMES A DAY(500MG TWICE EACH DAY FOR 7 DAYS)
     Route: 065
     Dates: start: 20250530, end: 20250603

REACTIONS (3)
  - Medication error [Unknown]
  - Vomiting [Recovered/Resolved]
  - Nausea [Recovering/Resolving]

NARRATIVE: CASE EVENT DATE: 20250602
